FAERS Safety Report 17493638 (Version 1)
Quarter: 2020Q1

REPORT INFORMATION
  Report Type: Spontaneous
  Country: CA (occurrence: CA)
  Receive Date: 20200304
  Receipt Date: 20200304
  Transmission Date: 20200409
  Serious: Yes (Disabling)
  Sender: FDA-Public Use
  Company Number: CA-ROCHE-2561864

PATIENT
  Age: 58 Year
  Sex: Male

DRUGS (1)
  1. XOLAIR [Suspect]
     Active Substance: OMALIZUMAB
     Indication: URTICARIA
     Route: 065

REACTIONS (6)
  - Pruritus [Unknown]
  - Chest pain [Unknown]
  - Vasodilatation [Unknown]
  - Blood pressure increased [Unknown]
  - Muscle twitching [Unknown]
  - Headache [Unknown]
